FAERS Safety Report 8302472-9 (Version None)
Quarter: 2012Q2

REPORT INFORMATION
  Report Type: 
  Country: None (occurrence: None)
  Receive Date: 20120402
  Receipt Date: 20120322
  Transmission Date: 20120825
  Serious: Yes (Other)
  Sender: FDA-Public Use
  Company Number: 2012031764

PATIENT
  Age: 58 Year
  Sex: Female

DRUGS (13)
  1. VIVAGLOBIN [Suspect]
     Indication: IMMUNODEFICIENCY
     Dosage: 30 ML, AT RATE OF 1ML/MINUTE, SUBCUTANEOUS
     Route: 058
     Dates: start: 20120303, end: 20120303
  2. APO-HYDROXYQUINE (HYDROXYCHLOROQUINE SULFATE) [Concomitant]
  3. VITAMIN D [Concomitant]
  4. VIVAGLOBIN [Suspect]
  5. VIVAGLOBIN [Suspect]
     Indication: HYPOGAMMAGLOBULINAEMIA
  6. VIVAGLOBIN [Suspect]
     Indication: IMMUNODEFICIENCY
  7. VIVAGLOBIN [Suspect]
     Indication: IMMUNODEFICIENCY
     Dates: start: 20110525
  8. VIVAGLOBIN [Suspect]
     Indication: HYPOGAMMAGLOBULINAEMIA
     Dates: start: 20110525
  9. VIVAGLOBIN [Suspect]
     Indication: IMMUNODEFICIENCY
  10. VIVAGLOBIN [Suspect]
     Indication: HYPOGAMMAGLOBULINAEMIA
  11. CALCIUM [Concomitant]
  12. VIVAGLOBIN [Suspect]
     Indication: IMMUNODEFICIENCY
  13. VIVAGLOBIN [Suspect]
     Indication: HYPOGAMMAGLOBULINAEMIA

REACTIONS (6)
  - BURNING SENSATION [None]
  - PRODUCT CONTAMINATION MICROBIAL [None]
  - BACK PAIN [None]
  - DYSPNOEA [None]
  - HYPERSENSITIVITY [None]
  - INJECTION SITE PAIN [None]
